FAERS Safety Report 8568962-9 (Version None)
Quarter: 2012Q3

REPORT INFORMATION
  Report Type: 
  Country: None (occurrence: None)
  Receive Date: 20120803
  Receipt Date: 20120417
  Transmission Date: 20120928
  Serious: No
  Sender: FDA-Public Use
  Company Number: US-ABBOTT-12P-163-0926461-00

PATIENT
  Sex: Female
  Weight: 49.486 kg

DRUGS (2)
  1. NIASPAN [Suspect]
     Indication: BLOOD CHOLESTEROL INCREASED
     Dates: start: 20120301
  2. LEVOXYL [Concomitant]
     Indication: HYPOTHYROIDISM

REACTIONS (1)
  - DIZZINESS [None]
